FAERS Safety Report 18122216 (Version 4)
Quarter: 2020Q4

REPORT INFORMATION
  Report Type: Report from Study
  Country: US (occurrence: US)
  Receive Date: 20200807
  Receipt Date: 20201012
  Transmission Date: 20210113
  Serious: Yes (Hospitalization, Other)
  Sender: FDA-Public Use
  Company Number: US-AUROBINDO-AUR-APL-2020-037965

PATIENT
  Age: 49 Year
  Sex: Female
  Weight: 98.9 kg

DRUGS (4)
  1. PEMBROLIZUMAB. [Suspect]
     Active Substance: PEMBROLIZUMAB
     Indication: PRODUCT USED FOR UNKNOWN INDICATION
     Dosage: 200 MILLIGRAM, Q 21 DAY
     Route: 042
     Dates: start: 20200724
  2. FOLOTYN [Suspect]
     Active Substance: PRALATREXATE
     Dosage: 57 MILLIGRAM  DAY 1 AND 8
     Route: 042
     Dates: start: 20200720
  3. FOLOTYN [Suspect]
     Active Substance: PRALATREXATE
     Indication: CUTANEOUS T-CELL LYMPHOMA
     Dosage: 65 MILLIGRAM, DAY 1 AND 8
     Route: 042
     Dates: start: 20200724
  4. PEMBROLIZUMAB. [Suspect]
     Active Substance: PEMBROLIZUMAB
     Dosage: 200 MILLIGRAM, Q 21 DAY
     Route: 042
     Dates: start: 20200720

REACTIONS (14)
  - Pruritus [Unknown]
  - Nausea [Unknown]
  - Asthenia [Unknown]
  - Erythema [Unknown]
  - Vomiting [Unknown]
  - Abdominal distension [Unknown]
  - Pain [Unknown]
  - Chills [Unknown]
  - Dyspnoea [Unknown]
  - Mucosal inflammation [Unknown]
  - Pneumonitis [Unknown]
  - Malaise [Unknown]
  - Ulcer [Unknown]
  - Skin lesion [Recovering/Resolving]

NARRATIVE: CASE EVENT DATE: 20200724
